FAERS Safety Report 6445118-7 (Version None)
Quarter: 2009Q4

REPORT INFORMATION
  Report Type: 
  Country: None (occurrence: None)
  Receive Date: 20091116
  Receipt Date: 20091116
  Transmission Date: 20100525
  Serious: Yes (Hospitalization)
  Sender: FDA-Public Use
  Company Number: None

PATIENT
  Age: 77 Year
  Sex: Male
  Weight: 102.3 kg

DRUGS (2)
  1. CLOPIDOGREL [Suspect]
     Indication: STENT PLACEMENT
     Dosage: 75 MG EVERY DAY PO
     Route: 048
     Dates: start: 20081115, end: 20091106
  2. ETODOLAC [Suspect]
     Indication: PAIN
     Dosage: 600 MG BID PO
     Route: 048
     Dates: start: 20081105, end: 20091106

REACTIONS (1)
  - GASTROINTESTINAL HAEMORRHAGE [None]
